FAERS Safety Report 4373050-1 (Version None)
Quarter: 2004Q2

REPORT INFORMATION
  Report Type: 
  Country: None (occurrence: None)
  Receive Date: 20040526
  Receipt Date: 20040510
  Transmission Date: 20050107
  Serious: Yes (Hospitalization)
  Sender: FDA-Public Use
  Company Number: DSA_24386_2004

PATIENT
  Age: 81 Year
  Sex: Female

DRUGS (12)
  1. ENALAPRIL MALEATE [Suspect]
     Indication: HYPERTENSION
     Dosage: 10 MG BID PO
     Route: 048
  2. GLYBURIDE [Suspect]
     Indication: DIABETES MELLITUS NON-INSULIN-DEPENDENT
     Dosage: 8.75 MG Q DAY PO
     Route: 048
     Dates: end: 20030812
  3. GLYBURIDE [Suspect]
     Indication: DIABETES MELLITUS NON-INSULIN-DEPENDENT
     Dosage: 3.5 MG BID PO
     Route: 048
     Dates: start: 20030813, end: 20030820
  4. GLYBURIDE [Suspect]
     Indication: DIABETES MELLITUS NON-INSULIN-DEPENDENT
     Dosage: 3.5 MG Q DAY PO
     Route: 048
     Dates: start: 20030821, end: 20030821
  5. GLYBURIDE [Suspect]
     Indication: DIABETES MELLITUS NON-INSULIN-DEPENDENT
     Dosage: 3.5 G BID PO
     Route: 048
     Dates: start: 20030822, end: 20030824
  6. GLYBURIDE [Suspect]
     Indication: DIABETES MELLITUS NON-INSULIN-DEPENDENT
     Dosage: 3.5 MG Q DAY PO
     Route: 048
     Dates: start: 20030825
  7. METFORMIN HCL [Suspect]
     Indication: DIABETES MELLITUS NON-INSULIN-DEPENDENT
     Dosage: 850 MG BID PO
     Route: 048
     Dates: end: 20030820
  8. METFORMIN HCL [Suspect]
     Indication: DIABETES MELLITUS NON-INSULIN-DEPENDENT
     Dosage: 500 MG Q DAY PO
     Route: 048
     Dates: start: 20030821
  9. CONCOR [Suspect]
     Indication: HYPERTENSION
     Dosage: 5 MG BID PO
     Route: 048
  10. ASPIRIN [Concomitant]
  11. DIGITOXIN TAB [Concomitant]
  12. L-THYROXIN [Concomitant]

REACTIONS (5)
  - BLOOD GLUCOSE FLUCTUATION [None]
  - BLOOD GLUCOSE INCREASED [None]
  - DRUG INTERACTION [None]
  - GLYCOSYLATED HAEMOGLOBIN INCREASED [None]
  - SHOCK HYPOGLYCAEMIC [None]
